FAERS Safety Report 17118732 (Version 1)
Quarter: 2019Q4

REPORT INFORMATION
  Report Type: Spontaneous
  Country: US (occurrence: US)
  Receive Date: 20191206
  Receipt Date: 20191206
  Transmission Date: 20200122
  Serious: No
  Sender: FDA-Public Use
  Company Number: NVSC2019US055456

PATIENT
  Age: 49 Year
  Sex: Female
  Weight: 79.37 kg

DRUGS (1)
  1. COSENTYX [Suspect]
     Active Substance: SECUKINUMAB
     Indication: PSORIATIC ARTHROPATHY
     Dosage: 150 MG, QMO
     Route: 003
     Dates: start: 20190903, end: 20191126

REACTIONS (12)
  - Pharyngeal swelling [Recovering/Resolving]
  - Oropharyngeal pain [Recovering/Resolving]
  - Blood pressure increased [Unknown]
  - Incorrect route of product administration [Unknown]
  - Oral candidiasis [Recovering/Resolving]
  - Dysphagia [Recovering/Resolving]
  - Tongue blistering [Recovering/Resolving]
  - Thyroid mass [Unknown]
  - Computerised tomogram abnormal [Unknown]
  - Nasopharyngitis [Recovering/Resolving]
  - Malaise [Recovering/Resolving]
  - Oral mucosal blistering [Recovering/Resolving]

NARRATIVE: CASE EVENT DATE: 20191104
